FAERS Safety Report 7409280-1 (Version None)
Quarter: 2011Q2

REPORT INFORMATION
  Report Type: 
  Country: None (occurrence: None)
  Receive Date: 20110412
  Receipt Date: 20110405
  Transmission Date: 20111010
  Serious: Yes (Death)
  Sender: FDA-Public Use
  Company Number: A0922291A

PATIENT
  Sex: Male

DRUGS (1)
  1. COREG [Suspect]
     Dosage: 25MG UNKNOWN
     Dates: start: 20070901

REACTIONS (4)
  - PNEUMONIA [None]
  - NEOPLASM MALIGNANT [None]
  - DEATH [None]
  - MALAISE [None]
